FAERS Safety Report 6749613-2 (Version None)
Quarter: 2010Q2

REPORT INFORMATION
  Report Type: 
  Country: None (occurrence: None)
  Receive Date: 20100601
  Receipt Date: 20100524
  Transmission Date: 20101027
  Serious: Yes (Other)
  Sender: FDA-Public Use
  Company Number: A0861054A

PATIENT
  Age: 69 Year
  Sex: Female

DRUGS (10)
  1. ADVAIR DISKUS 100/50 [Suspect]
     Indication: LUNG NEOPLASM MALIGNANT
     Dosage: 1PUFF PER DAY
     Route: 055
     Dates: start: 20090101
  2. PREVACID [Concomitant]
  3. NASACORT [Concomitant]
  4. SPIRIVA [Concomitant]
  5. PREMARIN [Concomitant]
  6. ALPRAZOLAM [Concomitant]
  7. OXYCONTIN [Concomitant]
  8. TEMAZEPAM [Concomitant]
  9. SYNTHROID [Concomitant]
  10. DOXYCYCLINE [Concomitant]

REACTIONS (6)
  - CARCINOEMBRYONIC ANTIGEN INCREASED [None]
  - COLLAPSE OF LUNG [None]
  - DRUG INEFFECTIVE [None]
  - LUNG NEOPLASM MALIGNANT [None]
  - MALIGNANT NEOPLASM PROGRESSION [None]
  - MEDICATION ERROR [None]
